FAERS Safety Report 13232122 (Version 1)
Quarter: 2017Q1

REPORT INFORMATION
  Report Type: Spontaneous
  Country: GB (occurrence: GB)
  Receive Date: 20170214
  Receipt Date: 20170214
  Transmission Date: 20170428
  Serious: Yes (Hospitalization, Other)
  Sender: FDA-Public Use
  Company Number: GB-MYLANLABS-2017M1009247

PATIENT

DRUGS (14)
  1. AMOXICILLIN. [Concomitant]
     Active Substance: AMOXICILLIN
     Dosage: UNK
  2. FERROUS SULFATE. [Concomitant]
     Active Substance: FERROUS SULFATE
  3. IBUPROFEN. [Concomitant]
     Active Substance: IBUPROFEN
  4. SIMVASTATIN. [Concomitant]
     Active Substance: SIMVASTATIN
  5. GTN [Concomitant]
     Active Substance: NITROGLYCERIN
     Route: 060
  6. LEVETIRACETAM. [Suspect]
     Active Substance: LEVETIRACETAM
     Dosage: 250 MG, BID
     Route: 048
  7. PARACETAMOL [Concomitant]
     Active Substance: ACETAMINOPHEN
  8. ASPIRIN                            /00002701/ [Concomitant]
     Active Substance: ASPIRIN
  9. BISOPROLOL [Concomitant]
     Active Substance: BISOPROLOL
  10. COLECALCIFEROL [Concomitant]
     Active Substance: CHOLECALCIFEROL
  11. CYANOCOBALAMIN. [Concomitant]
     Active Substance: CYANOCOBALAMIN
  12. RANITIDINE. [Concomitant]
     Active Substance: RANITIDINE
  13. SALBUTAMOL [Concomitant]
     Active Substance: ALBUTEROL
  14. LANSOPRAZOLE. [Concomitant]
     Active Substance: LANSOPRAZOLE

REACTIONS (3)
  - Pancytopenia [Recovering/Resolving]
  - Epistaxis [Recovered/Resolved]
  - Acute kidney injury [Unknown]
